FAERS Safety Report 4638791-7 (Version None)
Quarter: 2005Q2

REPORT INFORMATION
  Report Type: 
  Country: None (occurrence: None)
  Receive Date: 20050418
  Receipt Date: 20050418
  Transmission Date: 20051028
  Serious: Yes (Life-Threatening, Hospitalization, Other)
  Sender: FDA-Public Use
  Company Number: None

PATIENT
  Age: 6 Month
  Sex: Female
  Weight: 48 kg

DRUGS (1)
  1. ALDARA [Suspect]
     Indication: CONDYLOMA ACUMINATUM
     Dosage: 16 WEEKS    3 TIMES A WEEK    TOPICAL
     Route: 061
     Dates: start: 20050901, end: 20051201

REACTIONS (5)
  - AUTOIMMUNE DISORDER [None]
  - LIVER DISORDER [None]
  - MALAISE [None]
  - RENAL DISORDER [None]
  - THYROID DISORDER [None]
